FAERS Safety Report 9025881 (Version 1)
Quarter: 2012Q4

REPORT INFORMATION
  Report Type: Spontaneous
  Country: US (occurrence: None)
  Receive Date: 20121214
  Receipt Date: 20121214
  Transmission Date: 20130627
  Serious: No
  Sender: FDA-Public Use
  Company Number: None

PATIENT
  Age: 78 Year
  Sex: Male
  Weight: 87.7 kg

DRUGS (2)
  1. SPIRONOLACTONE [Suspect]
     Dosage: UD
     Route: 048
     Dates: start: 20120812, end: 20120907
  2. LISINOPRIL [Suspect]
     Route: 048
     Dates: start: 20011025, end: 20120907

REACTIONS (1)
  - Hyperkalaemia [None]
